FAERS Safety Report 5536266-4 (Version None)
Quarter: 2007Q4

REPORT INFORMATION
  Report Type: 
  Country: None (occurrence: None)
  Receive Date: 20071206
  Receipt Date: 20071205
  Transmission Date: 20080405
  Serious: No
  Sender: FDA-Public Use
  Company Number: US-BOEHRINGER INGELHEIM PHARMACEUTICALS, INC.-2007-BP-25611BP

PATIENT
  Age: 54 Year
  Sex: Female

DRUGS (7)
  1. SPIRIVA [Suspect]
     Indication: BRONCHITIS
     Route: 055
     Dates: start: 20071127
  2. SPIRIVA [Suspect]
     Indication: SARCOIDOSIS
  3. PREDNISONE TAB [Concomitant]
  4. CARDIZEM [Concomitant]
  5. ALBUTEROL [Concomitant]
  6. IRON TABLETS [Concomitant]
  7. MULTI-VITAMIN [Concomitant]

REACTIONS (3)
  - EYE PAIN [None]
  - PHOTOPHOBIA [None]
  - VISION BLURRED [None]
